FAERS Safety Report 18330348 (Version 1)
Quarter: 2020Q3

REPORT INFORMATION
  Report Type: Spontaneous
  Country: FR (occurrence: FR)
  Receive Date: 20200930
  Receipt Date: 20200930
  Transmission Date: 20201103
  Serious: Yes (Other)
  Sender: FDA-Public Use
  Company Number: FR-MYLANLABS-2018M1001744

PATIENT
  Age: 57 Year
  Sex: Female

DRUGS (1)
  1. PAROXETIN MYLAN, FILMTABLETTEN [Suspect]
     Active Substance: PAROXETINE HYDROCHLORIDE
     Indication: DEPRESSION
     Dosage: 2 TABLETS IN THE MORNING

REACTIONS (2)
  - Blindness [Unknown]
  - Angle closure glaucoma [Not Recovered/Not Resolved]

NARRATIVE: CASE EVENT DATE: 2018
